FAERS Safety Report 16940014 (Version 4)
Quarter: 2020Q3

REPORT INFORMATION
  Report Type: Report from Study
  Country: US (occurrence: US)
  Receive Date: 20191021
  Receipt Date: 20200703
  Transmission Date: 20201102
  Serious: Yes (Death, Other)
  Sender: FDA-Public Use
  Company Number: NVSC2019US007284

PATIENT
  Age: 62 Year
  Sex: Female

DRUGS (2)
  1. KYMRIAH [Suspect]
     Active Substance: TISAGENLECLEUCEL
     Indication: DIFFUSE LARGE B-CELL LYMPHOMA
     Dosage: UNK, ONCE/SINGLE
     Route: 041
     Dates: start: 2018
  2. BENDAMUSTINE [Concomitant]
     Active Substance: BENDAMUSTINE
     Indication: CHEMOTHERAPY
     Route: 065

REACTIONS (5)
  - Malignant neoplasm progression [Fatal]
  - Platelet count decreased [Unknown]
  - Lymphocyte count decreased [Unknown]
  - Staphylococcal infection [Unknown]
  - Diffuse large B-cell lymphoma [Fatal]
